FAERS Safety Report 17261131 (Version 3)
Quarter: 2021Q4

REPORT INFORMATION
  Report Type: Report from Study
  Country: KR (occurrence: KR)
  Receive Date: 20200113
  Receipt Date: 20211115
  Transmission Date: 20220304
  Serious: Yes (Hospitalization)
  Sender: FDA-Public Use
  Company Number: KR-BIOGEN-2020BI00825114

PATIENT
  Age: 38 Year
  Sex: Male
  Weight: 72 kg

DRUGS (8)
  1. TECFIDERA [Suspect]
     Active Substance: DIMETHYL FUMARATE
     Indication: Relapsing-remitting multiple sclerosis
     Route: 048
     Dates: start: 20190430, end: 20190506
  2. TECFIDERA [Suspect]
     Active Substance: DIMETHYL FUMARATE
     Route: 048
     Dates: start: 20190507
  3. BEECOM [Concomitant]
     Indication: Vitamin supplementation
     Route: 048
     Dates: start: 20160404
  4. BEECOM [Concomitant]
     Route: 042
     Dates: start: 20191226, end: 20191228
  5. BACRON [Concomitant]
     Indication: Product used for unknown indication
     Route: 048
     Dates: start: 20140314, end: 20190927
  6. LYRIBEAR [Concomitant]
     Indication: Product used for unknown indication
     Route: 048
     Dates: start: 20180808, end: 20190512
  7. SILDENAFIL CITRATE [Concomitant]
     Active Substance: SILDENAFIL CITRATE
     Indication: Prophylaxis
     Route: 048
     Dates: start: 20171006
  8. LYRICA [Concomitant]
     Active Substance: PREGABALIN
     Indication: Product used for unknown indication
     Route: 048
     Dates: start: 20190527

REACTIONS (1)
  - Diplopia [Recovered/Resolved]

NARRATIVE: CASE EVENT DATE: 20191223
